FAERS Safety Report 5383270-5 (Version None)
Quarter: 2007Q3

REPORT INFORMATION
  Report Type: 
  Country: None (occurrence: None)
  Receive Date: 20070710
  Receipt Date: 20070704
  Transmission Date: 20080115
  Serious: Yes (Death, Other)
  Sender: FDA-Public Use
  Company Number: JP-ELI_LILLY_AND_COMPANY-JP200707001034

PATIENT
  Age: 61 Year
  Sex: Male

DRUGS (4)
  1. GEMZAR [Suspect]
     Indication: PANCREATIC CARCINOMA
     Dosage: 100 MG, UNKNOWN
     Route: 042
     Dates: start: 20040813
  2. FLUOROURACIL [Concomitant]
     Indication: PANCREATIC CARCINOMA
     Dosage: 500 MG, UNKNOWN
     Route: 013
     Dates: start: 20040827
  3. EPIRUBICIN HCL [Concomitant]
     Indication: PANCREATIC CARCINOMA
     Dosage: 40 MG, UNKNOWN
     Route: 013
     Dates: start: 20040827
  4. MITOMYCIN-C BULK POWDER [Concomitant]
     Indication: PANCREATIC CARCINOMA
     Dosage: 20 MG, UNKNOWN
     Route: 013
     Dates: start: 20040827

REACTIONS (6)
  - CHOLANGITIS [None]
  - DEATH [None]
  - HEPATIC ARTERY OCCLUSION [None]
  - LIVER ABSCESS [None]
  - PLATELET COUNT DECREASED [None]
  - SKIN DISORDER [None]
